FAERS Safety Report 11964672 (Version 1)
Quarter: 2016Q1

REPORT INFORMATION
  Report Type: Spontaneous
  Country: US (occurrence: None)
  Receive Date: 20160122
  Receipt Date: 20160122
  Transmission Date: 20160526
  Serious: Yes (Other)
  Sender: FDA-Public Use
  Company Number: None

PATIENT
  Age: 63 Year
  Sex: Female
  Weight: 88.45 kg

DRUGS (9)
  1. RESTASIS [Concomitant]
     Active Substance: CYCLOSPORINE
  2. MULTIVITAMIN [Concomitant]
     Active Substance: VITAMINS
  3. TYLENOR [Concomitant]
  4. VERSED [Suspect]
     Active Substance: MIDAZOLAM HYDROCHLORIDE
     Indication: CATARACT OPERATION
     Dosage: ONCE FOR MORE?! ?INTO A VEIN
     Dates: start: 20160118
  5. LUTEIN [Concomitant]
     Active Substance: LUTEIN
  6. LEVOTHYROXINE. [Concomitant]
     Active Substance: LEVOTHYROXINE
  7. L-LYSINE [Concomitant]
     Active Substance: LYSINE
  8. VITAMIN D [Concomitant]
     Active Substance: CHOLECALCIFEROL
  9. ALBUTEROL INHALER [Concomitant]
     Active Substance: ALBUTEROL

REACTIONS (6)
  - Balance disorder [None]
  - Eyelid pain [None]
  - Somnolence [None]
  - Underdose [None]
  - Impaired driving ability [None]
  - Slow speech [None]

NARRATIVE: CASE EVENT DATE: 20160118
